FAERS Safety Report 4911938-0 (Version None)
Quarter: 2006Q1

REPORT INFORMATION
  Report Type: 
  Country: None (occurrence: None)
  Receive Date: 20060213
  Receipt Date: 20060213
  Transmission Date: 20060701
  Serious: Yes (Hospitalization)
  Sender: FDA-Public Use
  Company Number: None

PATIENT
  Age: 77 Year
  Sex: Female
  Weight: 78.5 kg

DRUGS (1)
  1. THALIDOMIDE  100MG [Suspect]
     Indication: MULTIPLE MYELOMA
     Dosage: 200MG  DAILY  PO
     Route: 048
     Dates: start: 20050405, end: 20050825

REACTIONS (2)
  - HYPOTENSION [None]
  - STEVENS-JOHNSON SYNDROME [None]
